FAERS Safety Report 15889737 (Version 1)
Quarter: 2019Q1

REPORT INFORMATION
  Report Type: Report from Study
  Country: US (occurrence: US)
  Receive Date: 20190130
  Receipt Date: 20190130
  Transmission Date: 20190417
  Serious: Yes (Death, Other)
  Sender: FDA-Public Use
  Company Number: US-GILEAD-2019-0387090

PATIENT
  Age: 29 Year
  Sex: Male

DRUGS (32)
  1. BENADRYL [Concomitant]
     Active Substance: DIPHENHYDRAMINE HYDROCHLORIDE
  2. DHA [Concomitant]
     Active Substance: DIETARY SUPPLEMENT
  3. HIZENTRA [Concomitant]
     Active Substance: HUMAN IMMUNOGLOBULIN G
  4. PROBIOTICS NOS [Concomitant]
     Active Substance: PROBIOTICS NOS
  5. CARNITOR [Concomitant]
     Active Substance: LEVOCARNITINE
  6. GLUTATHIONE [Concomitant]
     Active Substance: GLUTATHIONE
  7. METFORMIN [Concomitant]
     Active Substance: METFORMIN HYDROCHLORIDE
  8. METHYLCOBALAMIN. [Concomitant]
     Active Substance: METHYLCOBALAMIN
  9. NADH [Concomitant]
     Active Substance: NADH
  10. OSTERA [Concomitant]
  11. B-100 COMPLEX [Concomitant]
     Active Substance: DEXPANTHENOL\NIACINAMIDE\PYRIDOXINE HYDROCHLORIDE\RIBOFLAVIN 5^-PHOSPHATE SODIUM\THIAMINE HYDROCHLORIDE
  12. FOLIC ACID. [Concomitant]
     Active Substance: FOLIC ACID
  13. LECITHIN [Concomitant]
     Active Substance: LECITHIN
  14. LEVOTHYROXINE. [Concomitant]
     Active Substance: LEVOTHYROXINE
  15. NYSTATIN. [Concomitant]
     Active Substance: NYSTATIN
  16. VITAMIN D3 [Concomitant]
     Active Substance: CHOLECALCIFEROL
  17. TOBI [Concomitant]
     Active Substance: TOBRAMYCIN
  18. PULMOZYME [Concomitant]
     Active Substance: DORNASE ALFA
  19. ASTRAGALUS PROPINQUUS [Concomitant]
  20. PREVACID [Concomitant]
     Active Substance: LANSOPRAZOLE
  21. AZTREONAM LYSINE [Suspect]
     Active Substance: AZTREONAM LYSINE
     Indication: CYSTIC FIBROSIS
     Dosage: 75 MG, TID, 28DS ON 28DS OFF
     Route: 055
  22. CRANBERRY [VACCINIUM MACROCARPON] [Concomitant]
  23. FIBER [Concomitant]
     Active Substance: PSYLLIUM HUSK
  24. SODIUM CHLORIDE. [Concomitant]
     Active Substance: SODIUM CHLORIDE
  25. TORSEMIDE. [Concomitant]
     Active Substance: TORSEMIDE
  26. POLYSACCHARIDE-IRON COMPLEX [Concomitant]
  27. QVAR [Concomitant]
     Active Substance: BECLOMETHASONE DIPROPIONATE
  28. XOPENEX [Concomitant]
     Active Substance: LEVALBUTEROL HYDROCHLORIDE
  29. ZINC CHLORIDE [Concomitant]
     Active Substance: ZINC CHLORIDE
  30. LACTULOSE. [Concomitant]
     Active Substance: LACTULOSE
  31. MICROLIPID [Concomitant]
  32. SPIRONOLACTONE. [Concomitant]
     Active Substance: SPIRONOLACTONE

REACTIONS (1)
  - Death [Fatal]

NARRATIVE: CASE EVENT DATE: 20190124
